FAERS Safety Report 16580133 (Version 1)
Quarter: 2019Q3

REPORT INFORMATION
  Report Type: Spontaneous
  Country: TW (occurrence: TW)
  Receive Date: 20190716
  Receipt Date: 20190716
  Transmission Date: 20191004
  Serious: Yes (Death)
  Sender: FDA-Public Use
  Company Number: TW-PFIZER INC-2019296498

PATIENT
  Age: 75 Year
  Sex: Male

DRUGS (35)
  1. LINEZOLID. [Suspect]
     Active Substance: LINEZOLID
     Indication: ACINETOBACTER INFECTION
  2. CEFTAZIDIME. [Suspect]
     Active Substance: CEFTAZIDIME
     Indication: ENTEROCOCCAL INFECTION
  3. TIGECYCLINE. [Suspect]
     Active Substance: TIGECYCLINE
     Indication: PNEUMONIA
  4. TIGECYCLINE. [Suspect]
     Active Substance: TIGECYCLINE
     Indication: DEVICE RELATED INFECTION
  5. IMIPENEM [Suspect]
     Active Substance: IMIPENEM
     Indication: PNEUMONIA
  6. IMIPENEM [Suspect]
     Active Substance: IMIPENEM
     Indication: ACINETOBACTER INFECTION
  7. CEFTAZIDIME. [Suspect]
     Active Substance: CEFTAZIDIME
     Indication: ACUTE RESPIRATORY DISTRESS SYNDROME
     Dosage: UNK
  8. LINEZOLID. [Suspect]
     Active Substance: LINEZOLID
     Indication: DEVICE RELATED INFECTION
  9. COLISTIN [Suspect]
     Active Substance: COLISTIN
     Indication: ACINETOBACTER INFECTION
  10. CEFTAZIDIME. [Suspect]
     Active Substance: CEFTAZIDIME
     Indication: SEPTIC SHOCK
  11. HYDROCORTISONE. [Concomitant]
     Active Substance: HYDROCORTISONE
     Dosage: UNK
  12. LINEZOLID. [Suspect]
     Active Substance: LINEZOLID
     Indication: SEPTIC SHOCK
     Dosage: UNK
  13. LINEZOLID. [Suspect]
     Active Substance: LINEZOLID
     Indication: PNEUMONIA
  14. COLISTIN [Suspect]
     Active Substance: COLISTIN
     Indication: ENTEROCOCCAL INFECTION
  15. CEFTAZIDIME. [Suspect]
     Active Substance: CEFTAZIDIME
     Indication: PNEUMONIA
  16. CEFTAZIDIME. [Suspect]
     Active Substance: CEFTAZIDIME
     Indication: DEVICE RELATED INFECTION
  17. LINEZOLID. [Suspect]
     Active Substance: LINEZOLID
     Indication: ENTEROCOCCAL INFECTION
  18. TIGECYCLINE. [Suspect]
     Active Substance: TIGECYCLINE
     Indication: SEPTIC SHOCK
     Dosage: UNK
  19. TIGECYCLINE. [Suspect]
     Active Substance: TIGECYCLINE
     Indication: ACINETOBACTER INFECTION
  20. TIGECYCLINE. [Suspect]
     Active Substance: TIGECYCLINE
     Indication: ENTEROCOCCAL INFECTION
  21. IMIPENEM [Suspect]
     Active Substance: IMIPENEM
     Indication: DEVICE RELATED INFECTION
  22. SULBACTAM [Suspect]
     Active Substance: SULBACTAM
     Indication: SEPTIC SHOCK
     Dosage: UNK
  23. SULBACTAM [Suspect]
     Active Substance: SULBACTAM
     Indication: ENTEROCOCCAL INFECTION
  24. COLISTIN [Suspect]
     Active Substance: COLISTIN
     Indication: SEPTIC SHOCK
     Dosage: UNK
  25. TIGECYCLINE. [Suspect]
     Active Substance: TIGECYCLINE
     Indication: ACUTE RESPIRATORY DISTRESS SYNDROME
  26. COLISTIN [Suspect]
     Active Substance: COLISTIN
     Indication: PNEUMONIA
  27. TIGECYCLINE. [Suspect]
     Active Substance: TIGECYCLINE
     Indication: PULMONARY OEDEMA
  28. IMIPENEM [Suspect]
     Active Substance: IMIPENEM
     Indication: SEPTIC SHOCK
     Dosage: UNK
  29. SULBACTAM [Suspect]
     Active Substance: SULBACTAM
     Indication: DEVICE RELATED INFECTION
  30. CEFTAZIDIME. [Suspect]
     Active Substance: CEFTAZIDIME
     Indication: PULMONARY OEDEMA
  31. IMIPENEM [Suspect]
     Active Substance: IMIPENEM
     Indication: ENTEROCOCCAL INFECTION
  32. SULBACTAM [Suspect]
     Active Substance: SULBACTAM
     Indication: PNEUMONIA
  33. SULBACTAM [Suspect]
     Active Substance: SULBACTAM
     Indication: ACINETOBACTER INFECTION
  34. COLISTIN [Suspect]
     Active Substance: COLISTIN
     Indication: DEVICE RELATED INFECTION
  35. CEFTAZIDIME. [Suspect]
     Active Substance: CEFTAZIDIME
     Indication: ACINETOBACTER INFECTION

REACTIONS (5)
  - Drug ineffective [Fatal]
  - Depressed level of consciousness [Fatal]
  - Cardiogenic shock [Fatal]
  - Sinus bradycardia [Fatal]
  - Hypotension [Fatal]
